FAERS Safety Report 4828888-0 (Version None)
Quarter: 2005Q4

REPORT INFORMATION
  Report Type: 
  Country: None (occurrence: None)
  Receive Date: 20051114
  Receipt Date: 20051114
  Transmission Date: 20060501
  Serious: No
  Sender: FDA-Public Use
  Company Number: None

PATIENT
  Age: 48 Year
  Sex: Female
  Weight: 46.7 kg

DRUGS (5)
  1. DOCETAXEL (TAXOTERE) [Suspect]
     Indication: BREAST CANCER METASTATIC
     Dosage: 52 MG IV, 25 MG IV
     Route: 042
     Dates: start: 20051012
  2. DOCETAXEL (TAXOTERE) [Suspect]
     Indication: BREAST CANCER METASTATIC
     Dosage: 52 MG IV, 25 MG IV
     Route: 042
     Dates: start: 20051026
  3. ZOFRAN [Concomitant]
  4. TAXOTERE [Concomitant]
  5. ZOMETA [Concomitant]

REACTIONS (2)
  - DACRYOSTENOSIS ACQUIRED [None]
  - LACRIMATION INCREASED [None]
